FAERS Safety Report 20206365 (Version 2)
Quarter: 2021Q4

REPORT INFORMATION
  Report Type: Spontaneous
  Country: US (occurrence: US)
  Receive Date: 20211220
  Receipt Date: 20211223
  Transmission Date: 20220303
  Serious: No
  Sender: FDA-Public Use
  Company Number: US-SA-SAC20211216000240

PATIENT
  Age: 65 Year
  Sex: Male

DRUGS (19)
  1. DUPIXENT [Suspect]
     Active Substance: DUPILUMAB
     Indication: Dermatitis atopic
     Dosage: 300 MG, QOW
     Route: 058
     Dates: start: 20210720
  2. HYDROCODONE [Concomitant]
     Active Substance: HYDROCODONE
  3. HYDROCODONE [Concomitant]
     Active Substance: HYDROCODONE
  4. HYDROCODONE BITARTRATE AND ACETAMINOPHEN [Concomitant]
     Active Substance: ACETAMINOPHEN\HYDROCODONE BITARTRATE
  5. SOL [Concomitant]
  6. HYDROXYZINE [Concomitant]
     Active Substance: HYDROXYZINE HYDROCHLORIDE
  7. HYDRALAZINE [Concomitant]
     Active Substance: HYDRALAZINE HYDROCHLORIDE
  8. AURYXIA [Concomitant]
     Active Substance: TETRAFERRIC TRICITRATE DECAHYDRATE
  9. AURYXIA [Concomitant]
     Active Substance: TETRAFERRIC TRICITRATE DECAHYDRATE
  10. LISINOPRIL [Concomitant]
     Active Substance: LISINOPRIL
  11. LISINOPRIL [Concomitant]
     Active Substance: LISINOPRIL
  12. ALLOPURINOL [Concomitant]
     Active Substance: ALLOPURINOL
  13. ALLOPURINOL [Concomitant]
     Active Substance: ALLOPURINOL
  14. CALCITRIOL [Concomitant]
     Active Substance: CALCITRIOL
  15. DILTIAZEM [Concomitant]
     Active Substance: DILTIAZEM
  16. SUCRALFATE [Concomitant]
     Active Substance: SUCRALFATE
  17. SUCRALFATE [Concomitant]
     Active Substance: SUCRALFATE
  18. OMEPRAZOLE [Concomitant]
     Active Substance: OMEPRAZOLE
  19. OMEPRAZOLE [Concomitant]
     Active Substance: OMEPRAZOLE

REACTIONS (7)
  - Sleep disorder [Unknown]
  - Pruritus [Unknown]
  - Metabolic surgery [Unknown]
  - Erythema [Unknown]
  - Rash [Unknown]
  - Drug ineffective [Unknown]
  - Dermatitis atopic [Unknown]
